FAERS Safety Report 10153120 (Version 1)
Quarter: 2014Q2

REPORT INFORMATION
  Report Type: Spontaneous
  Country: CL (occurrence: CL)
  Receive Date: 20140505
  Receipt Date: 20140505
  Transmission Date: 20141212
  Serious: Yes (Death, Other)
  Sender: FDA-Public Use
  Company Number: CL-TEVA-478632ISR

PATIENT
  Age: 18 Year
  Sex: Female
  Weight: 71 kg

DRUGS (1)
  1. AMOXICILLIN [Suspect]
     Indication: INJURY
     Route: 065

REACTIONS (7)
  - Death [Fatal]
  - Drug hypersensitivity [Unknown]
  - Myocarditis [Not Recovered/Not Resolved]
  - Loss of consciousness [Unknown]
  - Nausea [Unknown]
  - Vomiting [Unknown]
  - Dyspnoea [Unknown]
